FAERS Safety Report 21853269 (Version 1)
Quarter: 2023Q1

REPORT INFORMATION
  Report Type: Spontaneous
  Country: AR (occurrence: AR)
  Receive Date: 20230112
  Receipt Date: 20230112
  Transmission Date: 20230418
  Serious: Yes (Other)
  Sender: FDA-Public Use
  Company Number: AR-MYLANLABS-2023M1001842

PATIENT
  Age: 69 Year
  Sex: Female

DRUGS (1)
  1. ZOLOFT [Suspect]
     Active Substance: SERTRALINE HYDROCHLORIDE
     Indication: Product used for unknown indication
     Dosage: UNK
     Route: 065

REACTIONS (8)
  - Adverse event [Unknown]
  - Anxiety [Unknown]
  - Nausea [Unknown]
  - Agitation [Unknown]
  - Palpitations [Unknown]
  - Somnolence [Unknown]
  - Fatigue [Unknown]
  - Product packaging quantity issue [Unknown]
